FAERS Safety Report 12837164 (Version 3)
Quarter: 2016Q4

REPORT INFORMATION
  Report Type: Report from Study
  Country: CA (occurrence: CA)
  Receive Date: 20161011
  Receipt Date: 20161130
  Transmission Date: 20170207
  Serious: Yes (Death, Life-Threatening, Hospitalization, Disabling)
  Sender: FDA-Public Use
  Company Number: CA-B.I. PHARMACEUTICALS,INC./RIDGEFIELD-2016-BI-35649II

PATIENT

DRUGS (1)
  1. BLINDED DABIGATRAN [Suspect]
     Active Substance: DABIGATRAN ETEXILATE
     Indication: POST PROCEDURAL MYOCARDIAL INFARCTION
     Route: 065

REACTIONS (8)
  - Nausea [Recovered/Resolved]
  - Vomiting [Recovered/Resolved]
  - Abscess fungal [Recovered/Resolved with Sequelae]
  - Mediastinitis [Fatal]
  - Hiatus hernia strangulated [Recovered/Resolved with Sequelae]
  - Gastric volvulus [Recovered/Resolved with Sequelae]
  - Adrenocortical insufficiency acute [Recovered/Resolved]
  - Rheumatoid arthritis [Recovered/Resolved]

NARRATIVE: CASE EVENT DATE: 20160210
